FAERS Safety Report 7560106-5 (Version None)
Quarter: 2011Q2

REPORT INFORMATION
  Report Type: 
  Country: None (occurrence: None)
  Receive Date: 20110621
  Receipt Date: 20110620
  Transmission Date: 20111010
  Serious: Yes (Hospitalization)
  Sender: FDA-Public Use
  Company Number: A0863136A

PATIENT
  Age: 56 Year
  Sex: Female

DRUGS (1)
  1. AVANDIA [Suspect]
     Route: 048
     Dates: start: 20070101, end: 20080101

REACTIONS (8)
  - GASTROINTESTINAL PAIN [None]
  - CEREBROVASCULAR ACCIDENT [None]
  - PYREXIA [None]
  - VOMITING [None]
  - KIDNEY ENLARGEMENT [None]
  - PAIN [None]
  - HEPATITIS [None]
  - ABDOMINAL PAIN UPPER [None]
